FAERS Safety Report 7766761-9 (Version None)
Quarter: 2011Q3

REPORT INFORMATION
  Report Type: 
  Country: None (occurrence: None)
  Receive Date: 20110922
  Receipt Date: 20110712
  Transmission Date: 20111222
  Serious: No
  Sender: FDA-Public Use
  Company Number: US-ASTRAZENECA-2011SE42107

PATIENT
  Age: 57 Year
  Sex: Female

DRUGS (1)
  1. SEROQUEL XR [Suspect]
     Route: 048

REACTIONS (6)
  - MALAISE [None]
  - INSOMNIA [None]
  - VISUAL IMPAIRMENT [None]
  - INTERVERTEBRAL DISC DEGENERATION [None]
  - DRUG DOSE OMISSION [None]
  - DEPRESSION [None]
